FAERS Safety Report 25367566 (Version 1)
Quarter: 2025Q2

REPORT INFORMATION
  Report Type: Spontaneous
  Country: FR (occurrence: FR)
  Receive Date: 20250528
  Receipt Date: 20250528
  Transmission Date: 20250716
  Serious: Yes (Other)
  Sender: MYLAN
  Company Number: FR-MYLANLABS-2025M1044691

PATIENT
  Sex: Male

DRUGS (3)
  1. SORAFENIB [Suspect]
     Active Substance: SORAFENIB
     Indication: Mixed adenoneuroendocrine carcinoma
  2. SORAFENIB [Suspect]
     Active Substance: SORAFENIB
     Indication: Neuroendocrine tumour
  3. SORAFENIB [Suspect]
     Active Substance: SORAFENIB
     Indication: Hepatocellular carcinoma

REACTIONS (2)
  - Drug ineffective [Unknown]
  - Disease progression [Unknown]
